FAERS Safety Report 19868370 (Version 4)
Quarter: 2022Q3

REPORT INFORMATION
  Report Type: Report from Study
  Country: FR (occurrence: FR)
  Receive Date: 20210921
  Receipt Date: 20220909
  Transmission Date: 20221027
  Serious: Yes (Hospitalization)
  Sender: FDA-Public Use
  Company Number: FR-SERVIER-S21010139

PATIENT

DRUGS (12)
  1. PEGASPARGASE [Suspect]
     Active Substance: PEGASPARGASE
     Indication: Acute lymphocytic leukaemia
     Dosage: 2325 IU, D4
     Route: 042
     Dates: start: 20210719, end: 20210719
  2. VINCRISTINE [Suspect]
     Active Substance: VINCRISTINE
     Indication: Acute lymphocytic leukaemia
     Dosage: 1.4 MG, D1, D8, D15
     Route: 042
     Dates: start: 20210716
  3. DOXORUBICIN [Suspect]
     Active Substance: DOXORUBICIN
     Indication: Acute lymphocytic leukaemia
     Dosage: 23 MG, (D1, D8, D15)
     Route: 065
     Dates: start: 20210716
  4. CYCLOPHOSPHAMIDE [Suspect]
     Active Substance: CYCLOPHOSPHAMIDE
     Indication: Acute lymphocytic leukaemia
     Dosage: 930 MG (D29)
     Route: 065
     Dates: start: 20210817
  5. CYTARABINE [Suspect]
     Active Substance: CYTARABINE
     Indication: Acute lymphocytic leukaemia
     Dosage: 30 MG ON D5 AND D31
     Route: 037
     Dates: start: 20210721, end: 20210817
  6. CYTARABINE [Suspect]
     Active Substance: CYTARABINE
     Dosage: 30 MG, D31
     Route: 037
     Dates: start: 20210817, end: 20210817
  7. DEXAMETHASONE [Suspect]
     Active Substance: DEXAMETHASONE
     Indication: Acute lymphocytic leukaemia
     Dosage: 9 MG (D1 TO D7, D15 TO D21)
     Route: 048
     Dates: start: 20210716, end: 20210805
  8. THIOGUANINE [Suspect]
     Active Substance: THIOGUANINE
     Indication: Acute lymphocytic leukaemia
     Dosage: 40 MG ON MONDAY, WEDNESDAY, FRIDAY, SUNDAY
     Route: 048
     Dates: start: 20210817, end: 20210830
  9. THIOGUANINE [Suspect]
     Active Substance: THIOGUANINE
     Dosage: 80 MG ON TUESDAY, THURSDAY, SATURDAY
     Route: 048
     Dates: start: 20210817, end: 20210830
  10. MERCAPTOPURINE [Suspect]
     Active Substance: MERCAPTOPURINE
     Indication: Acute lymphocytic leukaemia
     Dosage: 22 MG, D1 TO D42 OF  INTERIM PHASE
     Route: 048
     Dates: start: 20210519, end: 20210629
  11. HYDROCORTISONE [Suspect]
     Active Substance: HYDROCORTISONE
     Indication: Acute lymphocytic leukaemia
     Dosage: 15 MG ON D5 AND D31
     Route: 037
     Dates: start: 20210721, end: 20210817
  12. METHOTREXATE [Suspect]
     Active Substance: METHOTREXATE
     Indication: Acute lymphocytic leukaemia
     Dosage: 12 MG, ON D5 AND D31
     Route: 037
     Dates: start: 20210721, end: 20210817

REACTIONS (1)
  - Venoocclusive liver disease [Recovered/Resolved]

NARRATIVE: CASE EVENT DATE: 20210901
